FAERS Safety Report 23499421 (Version 1)
Quarter: 2024Q1

REPORT INFORMATION
  Report Type: Spontaneous
  Country: US (occurrence: US)
  Receive Date: 20240208
  Receipt Date: 20240208
  Transmission Date: 20240410
  Serious: Yes (Other)
  Sender: FDA-Public Use
  Company Number: US-SA-2024SA041290

PATIENT
  Age: 33 Year
  Sex: Male

DRUGS (6)
  1. CAMPATH [Suspect]
     Active Substance: ALEMTUZUMAB
     Indication: Bone marrow conditioning regimen
  2. CAMPATH [Suspect]
     Active Substance: ALEMTUZUMAB
     Indication: T-cell prolymphocytic leukaemia
  3. DEXAMETHASONE [Suspect]
     Active Substance: DEXAMETHASONE
     Indication: T-cell prolymphocytic leukaemia
  4. CYCLOPHOSPHAMIDE [Suspect]
     Active Substance: CYCLOPHOSPHAMIDE
     Indication: T-cell prolymphocytic leukaemia
  5. DOXORUBICIN [Suspect]
     Active Substance: DOXORUBICIN
     Indication: T-cell prolymphocytic leukaemia
  6. VINCRISTINE [Concomitant]
     Active Substance: VINCRISTINE
     Indication: T-cell prolymphocytic leukaemia

REACTIONS (5)
  - Acute kidney injury [Unknown]
  - Cytomegalovirus viraemia [Unknown]
  - Staphylococcal bacteraemia [Unknown]
  - Physical deconditioning [Unknown]
  - Off label use [Unknown]
